FAERS Safety Report 24018820 (Version 2)
Quarter: 2024Q3

REPORT INFORMATION
  Report Type: Report from Study
  Country: CA (occurrence: CA)
  Receive Date: 20240627
  Receipt Date: 20240708
  Transmission Date: 20241017
  Serious: Yes (Hospitalization)
  Sender: ROCHE
  Company Number: CA-ROCHE-3525244

PATIENT
  Sex: Male

DRUGS (24)
  1. ACTEMRA [Suspect]
     Active Substance: TOCILIZUMAB
     Indication: Rheumatoid arthritis
     Dosage: DRUG DOSE FIRST ADMINISTERED IS 162 MG MILLIGRAM(S)
     Route: 058
     Dates: start: 20230118, end: 20240327
  2. ACTEMRA [Suspect]
     Active Substance: TOCILIZUMAB
     Dosage: DRUG DOSE FIRST ADMINISTERED IS 162 MG MILLIGRAM(S)
     Route: 058
     Dates: start: 20240626
  3. ACETAMINOPHEN [Concomitant]
     Active Substance: ACETAMINOPHEN
  4. APO CLOPIDOGREL [Concomitant]
  5. SULFASALAZINE [Concomitant]
     Active Substance: SULFASALAZINE
  6. EFUDEX [Concomitant]
     Active Substance: FLUOROURACIL
  7. TERAZOSIN [Concomitant]
     Active Substance: TERAZOSIN HYDROCHLORIDE
  8. ROSUVASTATIN CALCIUM [Concomitant]
     Active Substance: ROSUVASTATIN CALCIUM
  9. GLICLAZIDE [Concomitant]
     Active Substance: GLICLAZIDE
  10. M CAL 500 [Concomitant]
  11. AMLODIPINE [Concomitant]
     Active Substance: AMLODIPINE BESYLATE
  12. MINT FUROSEMIDE [Concomitant]
  13. AMOXICILLIN [Concomitant]
     Active Substance: AMOXICILLIN
  14. MINT HYDROXYCHLOROQUINE [Concomitant]
  15. METOPROLOL [Concomitant]
     Active Substance: METOPROLOL
  16. MORPHINE SULFATE [Concomitant]
     Active Substance: MORPHINE SULFATE
  17. LEFLUNOMIDE [Concomitant]
     Active Substance: LEFLUNOMIDE
  18. FUROSEMIDE [Concomitant]
     Active Substance: FUROSEMIDE
  19. PREDNISONE [Concomitant]
     Active Substance: PREDNISONE
  20. HYDROXYCHLOROQUINE [Concomitant]
     Active Substance: HYDROXYCHLOROQUINE
  21. VALSARTAN [Concomitant]
     Active Substance: VALSARTAN
  22. EFUDEX [Concomitant]
     Active Substance: FLUOROURACIL
  23. SYNTHROID [Concomitant]
     Active Substance: LEVOTHYROXINE SODIUM
  24. Teva Leflunomide [Concomitant]

REACTIONS (3)
  - Infected cyst [Recovered/Resolved]
  - Cyst [Unknown]
  - Off label use [Unknown]
